FAERS Safety Report 4382482-7 (Version None)
Quarter: 2004Q2

REPORT INFORMATION
  Report Type: 
  Country: None (occurrence: None)
  Receive Date: 20040610
  Receipt Date: 20040526
  Transmission Date: 20050107
  Serious: Yes (Disabling)
  Sender: FDA-Public Use
  Company Number: CART-10256

PATIENT
  Age: 30 Year
  Sex: Female
  Weight: 64.4108 kg

DRUGS (1)
  1. CARTICEL [Suspect]
     Indication: BONE DISORDER
     Dosage: 1 NA ONCE IS
     Dates: start: 19990507, end: 19990507

REACTIONS (11)
  - BACK INJURY [None]
  - CONTUSION [None]
  - FALL [None]
  - GRAFT OVERGROWTH [None]
  - JOINT CREPITATION [None]
  - JOINT INJURY [None]
  - MENISCUS LESION [None]
  - OSTEOCHONDROSIS [None]
  - PAIN [None]
  - SURGICAL PROCEDURE REPEATED [None]
  - SWELLING [None]
